FAERS Safety Report 8924136 (Version 2)
Quarter: 2013Q1

REPORT INFORMATION
  Report Type: Spontaneous
  Country: US (occurrence: US)
  Receive Date: 20121126
  Receipt Date: 20130108
  Transmission Date: 20140127
  Serious: Yes (Hospitalization)
  Sender: FDA-Public Use
  Company Number: US-GLAXOSMITHKLINE-A0661441A

PATIENT
  Age: 52 Year
  Sex: Male

DRUGS (5)
  1. AVANDIA [Suspect]
     Indication: TYPE 2 DIABETES MELLITUS
     Dosage: 8MG PER DAY
     Route: 048
     Dates: start: 200110, end: 200705
  2. GLIPIZIDE [Concomitant]
  3. LIPITOR [Concomitant]
  4. NOVOLOG [Concomitant]
  5. LANTUS [Concomitant]

REACTIONS (6)
  - Myocardial infarction [Not Recovered/Not Resolved]
  - Atrioventricular block complete [Unknown]
  - Cardiac disorder [Unknown]
  - Stent placement [Unknown]
  - Coronary artery bypass [Unknown]
  - Cardiomyopathy [Unknown]
